FAERS Safety Report 5225586-9 (Version None)
Quarter: 2007Q1

REPORT INFORMATION
  Report Type: 
  Country: None (occurrence: None)
  Receive Date: 20061201
  Receipt Date: 20060810
  Transmission Date: 20070707
  Serious: Yes (Hospitalization, Other)
  Sender: FDA-Public Use
  Company Number: US200608002383

PATIENT
  Age: 27 Year
  Sex: Female

DRUGS (5)
  1. CYMBALTA [Suspect]
     Indication: DEPRESSION
     Dosage: SEE IMAGE
     Dates: start: 20060701
  2. PRIMATENE (EPINEPHRINE) [Concomitant]
  3. ALEVE [Concomitant]
  4. ALBUTEROL [Concomitant]
  5. ADVAIR DISKUS 100/50 [Concomitant]

REACTIONS (6)
  - ANGER [None]
  - DEPRESSION [None]
  - DRUG INEFFECTIVE [None]
  - DYSMENORRHOEA [None]
  - SUICIDE ATTEMPT [None]
  - TEARFULNESS [None]
